FAERS Safety Report 9371107 (Version 1)
Quarter: 2013Q2

REPORT INFORMATION
  Report Type: Spontaneous
  Country: US (occurrence: None)
  Receive Date: 20130626
  Receipt Date: 20130626
  Transmission Date: 20140414
  Serious: Yes (Other)
  Sender: FDA-Public Use
  Company Number: None

PATIENT
  Sex: 0
  Weight: 70.31 kg

DRUGS (1)
  1. PREDNISONE [Suspect]
     Indication: PRURITUS
     Dosage: YEAR 2010  2011  2012  ?3 YRS OFF + ON

REACTIONS (4)
  - Contusion [None]
  - Depression [None]
  - Skin atrophy [None]
  - Drug ineffective [None]
